FAERS Safety Report 8443043-3 (Version None)
Quarter: 2012Q2

REPORT INFORMATION
  Report Type: 
  Country: None (occurrence: None)
  Receive Date: 20120615
  Receipt Date: 20120612
  Transmission Date: 20120825
  Serious: Yes (Other)
  Sender: FDA-Public Use
  Company Number: PHHY2012JP050597

PATIENT
  Age: 55 Year
  Sex: Female

DRUGS (3)
  1. FLUOROURACIL [Suspect]
     Indication: CHEMOTHERAPY
     Dosage: UNK
     Dates: start: 20070901
  2. OXALIPLATIN [Suspect]
     Indication: CHEMOTHERAPY
     Dosage: UNK
     Dates: start: 20070901
  3. LEUCOVORIN CALCIUM [Suspect]
     Indication: CHEMOTHERAPY

REACTIONS (1)
  - NEUROTOXICITY [None]
